FAERS Safety Report 8402261-0 (Version None)
Quarter: 2012Q2

REPORT INFORMATION
  Report Type: 
  Country: None (occurrence: None)
  Receive Date: 20120601
  Receipt Date: 20120524
  Transmission Date: 20120825
  Serious: Yes (Hospitalization, Other)
  Sender: FDA-Public Use
  Company Number: US-JNJFOC-20120109094

PATIENT
  Sex: Female
  Weight: 58.5 kg

DRUGS (27)
  1. LEVOFLOXACIN [Concomitant]
     Indication: URINARY TRACT INFECTION
     Dates: start: 20110914
  2. EYE CAPS (NUTRITIONAL SUPPLEMENT) [Concomitant]
  3. BACITRACIN [Concomitant]
  4. FENTANYL-100 [Concomitant]
     Indication: ANAESTHESIA
     Dates: start: 20110912
  5. MULTIVITAMIN [Concomitant]
     Indication: MEDICAL DIET
  6. METHYLPREDNISOLONE [Concomitant]
     Indication: DYSPNOEA
     Dates: start: 20110913
  7. COQ10 [Concomitant]
     Indication: MEDICAL DIET
  8. GABAPENTIN [Concomitant]
     Indication: MYALGIA
     Dates: start: 20110912
  9. FISH OIL [Concomitant]
  10. LACTATED RINGER'S [Concomitant]
     Indication: FLUID REPLACEMENT
     Dates: start: 20110912
  11. TYLENOL PM [Concomitant]
     Indication: INSOMNIA
     Dates: start: 20110913
  12. XARELTO [Suspect]
     Indication: THROMBOSIS PROPHYLAXIS
     Route: 048
     Dates: start: 20110913, end: 20110914
  13. FENTANYL-100 [Concomitant]
     Indication: PAIN
     Dates: start: 20110912
  14. ONDANSETRON [Concomitant]
     Indication: NAUSEA
     Dates: start: 20110912
  15. CALCIUM CARBONATE [Concomitant]
     Indication: MEDICAL DIET
  16. PANTOPRAZOLE [Concomitant]
     Indication: GASTROOESOPHAGEAL REFLUX DISEASE
  17. VITAMIN C [Concomitant]
     Indication: MEDICAL DIET
  18. NALOXONE [Concomitant]
     Indication: RESPIRATORY DEPRESSION
     Dates: start: 20110912
  19. SODIUM CHLORIDE [Concomitant]
     Indication: PROPHYLAXIS
     Route: 042
     Dates: start: 20110412
  20. DUONEB [Concomitant]
     Indication: DYSPNOEA
     Dates: start: 20110913
  21. PROPOFOL [Concomitant]
     Indication: ANAESTHESIA
  22. TRANSDERM SCOP [Concomitant]
     Indication: PROPHYLAXIS OF NAUSEA AND VOMITING
     Dates: start: 20110912
  23. HYDRALAZINE HCL [Concomitant]
     Indication: HYPERTENSION
     Dates: start: 20110912
  24. CEFAZOLIN [Concomitant]
     Dates: start: 20110912, end: 20110913
  25. MORPHINE [Concomitant]
     Indication: PAIN
     Dates: start: 20110912
  26. HYDROCODONE BITARTRATE + ACETAMINOPHEN [Concomitant]
     Indication: PAIN
     Dates: start: 20110913
  27. VITAMIN D [Concomitant]
     Indication: MEDICAL DIET

REACTIONS (1)
  - PULMONARY EMBOLISM [None]
